FAERS Safety Report 4895842-2 (Version None)
Quarter: 2005Q4

REPORT INFORMATION
  Report Type: 
  Country: None (occurrence: None)
  Receive Date: 20051215
  Receipt Date: 20050510
  Transmission Date: 20060501
  Serious: Yes (Hospitalization)
  Sender: FDA-Public Use
  Company Number: 2005073442

PATIENT
  Age: 80 Year
  Sex: Female
  Weight: 83.9154 kg

DRUGS (12)
  1. BEXTRA [Suspect]
     Indication: ARTHRITIS
     Dosage: 20 MG (20 MG, 1 IN 1 D), ORAL
     Route: 048
  2. PREDNISONE [Suspect]
     Indication: ARTHRITIS
  3. ARTHROTEC [Concomitant]
  4. VIOXX [Concomitant]
  5. SELENIUM (SELENIUM) [Concomitant]
  6. MULTIVITAMIN [Concomitant]
  7. FOLIC ACID [Concomitant]
  8. VITAMIN C (VITAMIN C) [Concomitant]
  9. CALCIUM WITH VITAMIN D (CALCIUM PHOSPHATE, CALCIUM SODIUM LACTATE, ERG [Concomitant]
  10. MAGNESIUM (MAGNESIUM) [Concomitant]
  11. OMEGA-3 (OMEGA-3 TRIGLYCERIDES) [Concomitant]
  12. ZINC (ZINC) [Concomitant]

REACTIONS (5)
  - ARRHYTHMIA [None]
  - CONTUSION [None]
  - DISORIENTATION [None]
  - NAUSEA [None]
  - SWELLING FACE [None]
